FAERS Safety Report 11267596 (Version 4)
Quarter: 2016Q1

REPORT INFORMATION
  Report Type: Spontaneous
  Country: US (occurrence: US)
  Receive Date: 20150713
  Receipt Date: 20160205
  Transmission Date: 20160525
  Serious: Yes (Other)
  Sender: FDA-Public Use
  Company Number: US-GLAXOSMITHKLINE-US2015GSK094655

PATIENT
  Sex: Female

DRUGS (1)
  1. BENLYSTA [Suspect]
     Active Substance: BELIMUMAB
     Indication: SYSTEMIC LUPUS ERYTHEMATOSUS
     Route: 042

REACTIONS (7)
  - Blood pressure fluctuation [Unknown]
  - Hip arthroplasty [Unknown]
  - Labile blood pressure [Unknown]
  - Amnesia [Unknown]
  - Drug dose omission [Unknown]
  - Skin fissures [Unknown]
  - Purulent discharge [Unknown]
